FAERS Safety Report 10150992 (Version 1)
Quarter: 2014Q2

REPORT INFORMATION
  Report Type: Spontaneous
  Country: US (occurrence: US)
  Receive Date: 20140502
  Receipt Date: 20140502
  Transmission Date: 20141212
  Serious: No
  Sender: FDA-Public Use
  Company Number: US-PFIZER INC-2014121027

PATIENT
  Age: 65 Year
  Sex: Female
  Weight: 46.26 kg

DRUGS (2)
  1. CHANTIX [Suspect]
     Indication: SMOKING CESSATION THERAPY
     Dosage: UNK
     Route: 048
     Dates: start: 20140406, end: 201404
  2. CHANTIX [Interacting]
     Dosage: 1 MG, 2X/DAY
     Route: 048
     Dates: start: 201404

REACTIONS (4)
  - Diarrhoea [Unknown]
  - Dysgeusia [Unknown]
  - Drug interaction [Unknown]
  - Nausea [Not Recovered/Not Resolved]
